FAERS Safety Report 10211176 (Version 1)
Quarter: 2014Q2

REPORT INFORMATION
  Report Type: Report from Study
  Country: US (occurrence: US)
  Receive Date: 20140602
  Receipt Date: 20140602
  Transmission Date: 20141212
  Serious: Yes (Hospitalization)
  Sender: FDA-Public Use
  Company Number: US-ABBVIE-13P-163-1153132-00

PATIENT
  Age: 53 Year
  Sex: Male

DRUGS (5)
  1. MARINOL [Suspect]
     Indication: NAUSEA
     Dosage: PRIOR TO ONE MEAL OF THE DAY
     Dates: start: 20130905
  2. MARINOL [Suspect]
     Indication: VOMITING
     Dosage: PRIOR TO THREE MEALS DAILY
     Dates: start: 201309
  3. ALBUTEROL [Concomitant]
     Indication: PRODUCT USED FOR UNKNOWN INDICATION
  4. NORCO [Concomitant]
     Indication: PRODUCT USED FOR UNKNOWN INDICATION
  5. ZOFRAN [Concomitant]
     Indication: PRODUCT USED FOR UNKNOWN INDICATION

REACTIONS (3)
  - Nausea [Unknown]
  - Vomiting [Unknown]
  - Abdominal pain [Unknown]
